FAERS Safety Report 12769002 (Version 2)
Quarter: 2016Q3

REPORT INFORMATION
  Report Type: Spontaneous
  Country: US (occurrence: US)
  Receive Date: 20160921
  Receipt Date: 20160922
  Transmission Date: 20161109
  Serious: Yes (Hospitalization, Other)
  Sender: FDA-Public Use
  Company Number: US-DSJP-DSU-2016-120679

PATIENT

DRUGS (3)
  1. BENICAR [Suspect]
     Active Substance: OLMESARTAN MEDOXOMIL
     Indication: PRODUCT USED FOR UNKNOWN INDICATION
     Dosage: UNK
  2. BENICAR HCT [Suspect]
     Active Substance: HYDROCHLOROTHIAZIDE\OLMESARTAN MEDOXOMIL
     Indication: HYPERTENSION
     Dosage: 40/12.5 MG, UNK
     Route: 048
     Dates: start: 2005, end: 20130918
  3. BENICAR HCT [Suspect]
     Active Substance: HYDROCHLOROTHIAZIDE\OLMESARTAN MEDOXOMIL
     Dosage: 20/12.5 MG, UNK
     Route: 048
     Dates: start: 2005, end: 20130918

REACTIONS (9)
  - Wrong technique in product usage process [Unknown]
  - Hypotension [Recovered/Resolved]
  - Hiatus hernia [Unknown]
  - Haemorrhoids [Unknown]
  - Gastric ulcer [Recovering/Resolving]
  - Renal failure [Recovered/Resolved]
  - Polyp [Unknown]
  - Abdominal hernia [Recovered/Resolved]
  - Malabsorption [Recovered/Resolved]

NARRATIVE: CASE EVENT DATE: 2005
